FAERS Safety Report 6306309-9 (Version None)
Quarter: 2009Q3

REPORT INFORMATION
  Report Type: 
  Country: None (occurrence: None)
  Receive Date: 20090812
  Receipt Date: 20090706
  Transmission Date: 20100115
  Serious: Yes (Life-Threatening)
  Sender: FDA-Public Use
  Company Number: PHHY2009DE32405

PATIENT
  Age: 40 Year
  Sex: Female

DRUGS (6)
  1. PANTOZOL [Suspect]
     Dosage: 12 DF, ONCE/SINGLE
     Route: 048
  2. DICLOFENAC [Suspect]
     Dosage: UNK
  3. AMITRIPTYLINE [Suspect]
     Dosage: UNK
  4. TRAMAL [Suspect]
     Dosage: UNK
  5. IBUPROFEN [Suspect]
     Dosage: UNK
  6. ALCOHOL [Suspect]

REACTIONS (7)
  - COMA [None]
  - HYPOTENSION [None]
  - INTENTIONAL OVERDOSE [None]
  - MIOSIS [None]
  - RESPIRATORY FAILURE [None]
  - SUICIDE ATTEMPT [None]
  - TACHYCARDIA [None]
